FAERS Safety Report 9493259 (Version 1)
Quarter: 2013Q3

REPORT INFORMATION
  Report Type: Report from Study
  Country: US (occurrence: US)
  Receive Date: 20130902
  Receipt Date: 20130902
  Transmission Date: 20140515
  Serious: Yes (Death)
  Sender: FDA-Public Use
  Company Number: PHEH2013US018444

PATIENT
  Sex: Male

DRUGS (7)
  1. AFINITOR [Suspect]
     Indication: RENAL CANCER
     Dosage: 10 MG, QD
     Route: 048
     Dates: start: 20130309, end: 201308
  2. AGGRENOX [Concomitant]
  3. LEVOTHYROXINE [Concomitant]
  4. DILANTIN//PHENYTOIN SODIUM [Concomitant]
  5. DIOVAN [Concomitant]
  6. LIPITOR [Concomitant]
  7. NEXIUM//ESOMEPRAZOLE SODIUM [Concomitant]

REACTIONS (1)
  - Death [Fatal]
